FAERS Safety Report 8293450-7 (Version None)
Quarter: 2012Q2

REPORT INFORMATION
  Report Type: 
  Country: None (occurrence: None)
  Receive Date: 20120417
  Receipt Date: 20120411
  Transmission Date: 20120825
  Serious: Yes (Hospitalization)
  Sender: FDA-Public Use
  Company Number: FR-MERCK-1201USA02887

PATIENT
  Age: 87 Year
  Sex: Female

DRUGS (10)
  1. PREVISCAN [Concomitant]
     Route: 048
  2. IXPRIM (ACETAMINOPHEN (+) TRAMADOL HYDROCHLORIDE) [Concomitant]
     Indication: PAIN
     Route: 048
     Dates: start: 20111114, end: 20111116
  3. CORDARONE [Concomitant]
     Route: 048
  4. ACETAMINOPHEN [Concomitant]
     Dosage: TWICE 500MG ON DEMAND
     Route: 048
  5. ATHYMIL [Concomitant]
     Route: 048
  6. ATORVASTATIN [Concomitant]
     Indication: HYPERCHOLESTEROLAEMIA
     Dosage: ON EVENINGS
     Route: 048
  7. VITAMIN D [Concomitant]
     Route: 048
  8. COZAAR [Suspect]
     Indication: HYPERTENSION
     Route: 048
     Dates: end: 20111117
  9. ESIDRIX [Suspect]
     Indication: HYPERTENSION
     Route: 048
     Dates: end: 20111117
  10. LORAZEPAM [Concomitant]
     Route: 048

REACTIONS (3)
  - DEHYDRATION [None]
  - DRUG INTERACTION [None]
  - RENAL FAILURE ACUTE [None]
